FAERS Safety Report 10670906 (Version 3)
Quarter: 2015Q4

REPORT INFORMATION
  Report Type: Report from Study
  Country: DE (occurrence: DE)
  Receive Date: 20141223
  Receipt Date: 20151218
  Transmission Date: 20160304
  Serious: Yes (Death, Life-Threatening, Hospitalization)
  Sender: FDA-Public Use
  Company Number: PHHO2014DE016891

PATIENT
  Age: 43 Year
  Sex: Male
  Weight: 74 kg

DRUGS (1)
  1. LDK378 [Suspect]
     Active Substance: CERITINIB
     Indication: NON-SMALL CELL LUNG CANCER
     Dosage: 750 MG, BID
     Route: 048
     Dates: start: 20141109, end: 20141214

REACTIONS (5)
  - Malignant neoplasm progression [Fatal]
  - Gastric perforation [Recovered/Resolved with Sequelae]
  - Multi-organ failure [Fatal]
  - Suture related complication [Recovered/Resolved with Sequelae]
  - Non-small cell lung cancer [Fatal]

NARRATIVE: CASE EVENT DATE: 20141215
